FAERS Safety Report 23239033 (Version 1)
Quarter: 2023Q4

REPORT INFORMATION
  Report Type: Spontaneous
  Country: JP (occurrence: JP)
  Receive Date: 20231129
  Receipt Date: 20231129
  Transmission Date: 20240110
  Serious: Yes (Hospitalization, Other)
  Sender: FDA-Public Use
  Company Number: JP-TAKEDA-2023TJP010591

PATIENT
  Age: 8 Decade

DRUGS (3)
  1. OPDIVO [Suspect]
     Active Substance: NIVOLUMAB
     Indication: Product used for unknown indication
     Dosage: UNK
  2. CABOMETYX [Suspect]
     Active Substance: CABOZANTINIB S-MALATE
     Indication: Product used for unknown indication
     Dosage: 40 MG/DAY
  3. CABOMETYX [Suspect]
     Active Substance: CABOZANTINIB S-MALATE
     Dosage: 20 MG/DAY

REACTIONS (7)
  - Rash [Recovered/Resolved]
  - Pyrexia [Unknown]
  - Stomatitis [Unknown]
  - Interstitial lung disease [Recovered/Resolved]
  - Pneumonia bacterial [Unknown]
  - Inappropriate antidiuretic hormone secretion [Unknown]
  - Hepatic function abnormal [Unknown]
